FAERS Safety Report 5078220-5 (Version None)
Quarter: 2006Q3

REPORT INFORMATION
  Report Type: 
  Country: None (occurrence: None)
  Receive Date: 20060725
  Receipt Date: 20050730
  Transmission Date: 20061208
  Serious: Yes (Hospitalization, Other)
  Sender: FDA-Public Use
  Company Number: 05-000563

PATIENT
  Age: 57 Year
  Sex: Female
  Weight: 172 kg

DRUGS (3)
  1. FEMHRT [Suspect]
     Indication: MENOPAUSAL SYMPTOMS
     Dosage: 5/1000 UG QD, ORAL
     Route: 048
     Dates: start: 20040101
  2. LISINOPRIL [Concomitant]
  3. HERBAL MEDICATIONS [Concomitant]

REACTIONS (3)
  - BLOOD PRESSURE FLUCTUATION [None]
  - CHEST DISCOMFORT [None]
  - DRUG INEFFECTIVE [None]
